FAERS Safety Report 15359470 (Version 1)
Quarter: 2018Q3

REPORT INFORMATION
  Report Type: Report from Study
  Country: IT (occurrence: IT)
  Receive Date: 20180907
  Receipt Date: 20180907
  Transmission Date: 20181010
  Serious: Yes (Hospitalization)
  Sender: FDA-Public Use
  Company Number: IT-TEVA-2018-IT-952348

PATIENT
  Age: 94 Year
  Sex: Male

DRUGS (7)
  1. MAALOX SACHETS 4.3ML [Concomitant]
     Route: 065
  2. PANTOPRAZOLE [Concomitant]
     Active Substance: PANTOPRAZOLE
     Route: 065
  3. ARTROTEC 75 COMPRESSE A RILASCIO MODIFICATO [Concomitant]
     Route: 065
  4. OMNIC 0,4 MG, CAPSULE RIGIDE A RILASCIO MODIFICATO [Concomitant]
     Route: 065
  5. PALEXIA COMPRESSE A RILASCIO PROLUNGATO DA 50 MG [Concomitant]
     Route: 065
  6. PACLITAXEL. [Suspect]
     Active Substance: PACLITAXEL
     Indication: MALIGNANT NEOPLASM PROGRESSION
     Route: 042
     Dates: start: 20180806, end: 20180813
  7. SOLDESAM [Concomitant]
     Active Substance: DEXAMETHASONE
     Route: 065

REACTIONS (2)
  - Candida infection [Recovering/Resolving]
  - Neutropenia [Recovering/Resolving]

NARRATIVE: CASE EVENT DATE: 20180815
